FAERS Safety Report 23482073 (Version 1)
Quarter: 2024Q1

REPORT INFORMATION
  Report Type: Spontaneous
  Country: AT (occurrence: AT)
  Receive Date: 20240205
  Receipt Date: 20240205
  Transmission Date: 20240410
  Serious: Yes (Other)
  Sender: FDA-Public Use
  Company Number: AT-002147023-NVSC2024AT021050

PATIENT
  Age: 59 Year
  Sex: Female

DRUGS (1)
  1. PIQRAY [Suspect]
     Active Substance: ALPELISIB
     Indication: Breast cancer
     Dosage: 150 MG
     Route: 065

REACTIONS (4)
  - Lung adenocarcinoma [Unknown]
  - Oral disorder [Unknown]
  - Renal disorder [Unknown]
  - Off label use [Unknown]
